FAERS Safety Report 8002035-9 (Version None)
Quarter: 2011Q4

REPORT INFORMATION
  Report Type: 
  Country: None (occurrence: None)
  Receive Date: 20111220
  Receipt Date: 20111206
  Transmission Date: 20120403
  Serious: Yes (Hospitalization)
  Sender: FDA-Public Use
  Company Number: UTC-013140

PATIENT
  Age: 64 Year
  Sex: Female

DRUGS (1)
  1. REMODULIN [Suspect]
     Indication: PULMONARY ARTERIAL HYPERTENSION
     Dosage: 18.72 UG/KG (0.013 UG/KG, 1 IN 1 MIN), SUBCUTANEOUS
     Route: 058
     Dates: start: 20110902

REACTIONS (5)
  - SKIN INFECTION [None]
  - INFUSION SITE PAIN [None]
  - EYE PAIN [None]
  - ARTHRALGIA [None]
  - INFUSION SITE INFECTION [None]
